FAERS Safety Report 7030702-2 (Version None)
Quarter: 2010Q4

REPORT INFORMATION
  Report Type: 
  Country: None (occurrence: None)
  Receive Date: 20101001
  Receipt Date: 20100915
  Transmission Date: 20110411
  Serious: Yes (Hospitalization)
  Sender: FDA-Public Use
  Company Number: ACO_02251_2010

PATIENT
  Sex: Female
  Weight: 99.7913 kg

DRUGS (3)
  1. AMPYRA [Suspect]
     Indication: GAIT DISTURBANCE
     Dosage: DF ORAL
     Route: 048
     Dates: start: 20100601, end: 20100701
  2. COPAXONE [Concomitant]
  3. BACLOFEN [Concomitant]

REACTIONS (5)
  - APHASIA [None]
  - ASTHENIA [None]
  - FEELING ABNORMAL [None]
  - HEMIPARESIS [None]
  - VIITH NERVE PARALYSIS [None]
